FAERS Safety Report 24294172 (Version 1)
Quarter: 2024Q3

REPORT INFORMATION
  Report Type: Spontaneous
  Country: US (occurrence: US)
  Receive Date: 20240906
  Receipt Date: 20240906
  Transmission Date: 20241016
  Serious: No
  Sender: DOMPE FARMACEUTICI
  Company Number: US-FARMAPROD-202308-202405-1768

PATIENT
  Sex: Male

DRUGS (14)
  1. OXERVATE [Suspect]
     Active Substance: CENEGERMIN-BKBJ
     Indication: Neurotrophic keratopathy
     Route: 047
     Dates: start: 20240425
  2. OXERVATE [Suspect]
     Active Substance: CENEGERMIN-BKBJ
  3. PRED FORTE [Concomitant]
     Active Substance: PREDNISOLONE ACETATE
  4. MOXIFLOXACIN [Concomitant]
     Active Substance: MOXIFLOXACIN
  5. MAXITROL [Concomitant]
     Active Substance: DEXAMETHASONE\NEOMYCIN SULFATE\POLYMYXIN B SULFATE
  6. TOPIRAMATE [Concomitant]
     Active Substance: TOPIRAMATE
  7. HYDROXYCHLOROQUINE SULFATE [Concomitant]
     Active Substance: HYDROXYCHLOROQUINE SULFATE
  8. OMEPRAZOLE [Concomitant]
     Active Substance: OMEPRAZOLE
  9. LISINOPRIL [Concomitant]
     Active Substance: LISINOPRIL
  10. METOPROLOL SUCCINATE [Concomitant]
     Active Substance: METOPROLOL SUCCINATE
  11. ROSUVASTATIN CALCIUM [Concomitant]
     Active Substance: ROSUVASTATIN CALCIUM
  12. ELIQUIS [Concomitant]
     Active Substance: APIXABAN
  13. TRAZODONE HCL [Concomitant]
     Active Substance: TRAZODONE HYDROCHLORIDE
  14. METFORMIN [Concomitant]
     Active Substance: METFORMIN HYDROCHLORIDE
     Dosage: EXTENDED RELEASE GASTRIC RETENTION

REACTIONS (3)
  - Eye pain [Not Recovered/Not Resolved]
  - Accidental overdose [Unknown]
  - Ocular hyperaemia [Not Recovered/Not Resolved]
